FAERS Safety Report 9645102 (Version 1)
Quarter: 2013Q4

REPORT INFORMATION
  Report Type: Report from Study
  Country: US (occurrence: US)
  Receive Date: 20131025
  Receipt Date: 20131025
  Transmission Date: 20140711
  Serious: Yes (Hospitalization, Other)
  Sender: FDA-Public Use
  Company Number: US-JNJFOC-20131010989

PATIENT
  Age: 31 Year
  Sex: Female
  Weight: 102.06 kg

DRUGS (16)
  1. REMICADE [Suspect]
     Indication: COLITIS ULCERATIVE
     Route: 042
     Dates: start: 20130912
  2. REMICADE [Suspect]
     Indication: COLITIS ULCERATIVE
     Route: 042
     Dates: start: 2009, end: 2009
  3. PENTASA [Concomitant]
     Indication: COLITIS ULCERATIVE
     Route: 048
     Dates: start: 2011
  4. HYOSCYAMINE [Concomitant]
     Indication: MUSCLE SPASMS
     Dosage: BEFORE MEALS
     Route: 060
     Dates: start: 201310
  5. BENTYL [Concomitant]
     Indication: MUSCLE SPASMS
     Route: 065
     Dates: start: 2011, end: 201310
  6. ATENOLOL [Concomitant]
     Indication: ARRHYTHMIA PROPHYLAXIS
     Route: 048
     Dates: start: 201309
  7. ATENOLOL [Concomitant]
     Indication: HYPERTENSION
     Route: 048
     Dates: start: 201309
  8. MESALAMINE [Concomitant]
     Indication: COLITIS ULCERATIVE
     Route: 054
  9. CYMBALTA [Concomitant]
     Indication: DEPRESSION
     Route: 048
     Dates: start: 2008
  10. PERCOCET [Concomitant]
     Indication: PAIN
     Dosage: AS NEEDED
     Route: 048
     Dates: start: 201309
  11. DEPAKOTE [Concomitant]
     Indication: SLEEP DISORDER
     Dosage: 1000MG TABLET
     Route: 048
     Dates: start: 2013
  12. AMBIEN [Concomitant]
     Indication: SLEEP DISORDER
     Dosage: AS NEEDED
     Route: 048
     Dates: start: 2006
  13. KLONOPIN [Concomitant]
     Indication: ANXIETY
     Dosage: AS NEEDED
     Route: 048
     Dates: start: 201310
  14. HYDROCORTISONE [Concomitant]
     Indication: ADRENAL INSUFFICIENCY
     Route: 048
     Dates: start: 2011
  15. HYDROCORTISONE [Concomitant]
     Indication: ADRENAL INSUFFICIENCY
     Route: 048
     Dates: start: 2011
  16. PREDNISONE [Concomitant]
     Indication: COLITIS ULCERATIVE
     Route: 048
     Dates: start: 2010, end: 2011

REACTIONS (7)
  - Colitis ulcerative [Not Recovered/Not Resolved]
  - Adrenal insufficiency [Not Recovered/Not Resolved]
  - Pain [Not Recovered/Not Resolved]
  - Diarrhoea [Not Recovered/Not Resolved]
  - Drug ineffective [Unknown]
  - Blood lactic acid increased [Recovered/Resolved]
  - Arthralgia [Not Recovered/Not Resolved]
